FAERS Safety Report 20912226 (Version 1)
Quarter: 2022Q2

REPORT INFORMATION
  Report Type: Spontaneous
  Country: US (occurrence: US)
  Receive Date: 20220603
  Receipt Date: 20220603
  Transmission Date: 20220721
  Serious: No
  Sender: FDA-Public Use
  Company Number: US-ASCENDIS PHARMA-2022US000232

PATIENT

DRUGS (1)
  1. SKYTROFA [Suspect]
     Active Substance: LONAPEGSOMATROPIN-TCGD
     Indication: Growth hormone deficiency
     Dosage: 9.1 MILLIGRAM, WEEKLY
     Route: 058
     Dates: start: 20220218

REACTIONS (7)
  - Nasopharyngitis [Not Recovered/Not Resolved]
  - Inflammation [Not Recovered/Not Resolved]
  - Pharyngeal swelling [Not Recovered/Not Resolved]
  - Cough [Not Recovered/Not Resolved]
  - Emotional distress [Not Recovered/Not Resolved]
  - Fatigue [Not Recovered/Not Resolved]
  - Arthralgia [Not Recovered/Not Resolved]

NARRATIVE: CASE EVENT DATE: 20220222
